FAERS Safety Report 4575760-X (Version None)
Quarter: 2005Q1

REPORT INFORMATION
  Report Type: 
  Country: None (occurrence: None)
  Receive Date: 20050128
  Receipt Date: 20050128
  Transmission Date: 20050727
  Serious: Yes (Other)
  Sender: FDA-Public Use
  Company Number: None

PATIENT
  Age: 54 Year
  Sex: Female

DRUGS (6)
  1. FENTANYL [Suspect]
     Indication: COLONOSCOPY
     Dosage: 100MCG   ONE TIME   INTRAVENOU
     Route: 042
     Dates: start: 20050126, end: 20050126
  2. FENTANYL [Suspect]
     Indication: ENDOSCOPY
     Dosage: 100MCG   ONE TIME   INTRAVENOU
     Route: 042
     Dates: start: 20050126, end: 20050126
  3. FENTANYL [Suspect]
     Indication: SEDATIVE THERAPY
     Dosage: 100MCG   ONE TIME   INTRAVENOU
     Route: 042
     Dates: start: 20050126, end: 20050126
  4. MIDAZOLAM   1MG/ML   APP [Suspect]
     Indication: COLONOSCOPY
     Dosage: 3MG   ONE TIME   INTRAVENOU
     Route: 042
     Dates: start: 20050126, end: 20050126
  5. MIDAZOLAM   1MG/ML   APP [Suspect]
     Indication: ENDOSCOPY
     Dosage: 3MG   ONE TIME   INTRAVENOU
     Route: 042
     Dates: start: 20050126, end: 20050126
  6. MIDAZOLAM   1MG/ML   APP [Suspect]
     Indication: SEDATIVE THERAPY
     Dosage: 3MG   ONE TIME   INTRAVENOU
     Route: 042
     Dates: start: 20050126, end: 20050126

REACTIONS (2)
  - ANAESTHETIC COMPLICATION [None]
  - URTICARIA [None]
